FAERS Safety Report 5141580-0 (Version None)
Quarter: 2006Q4

REPORT INFORMATION
  Report Type: 
  Country: None (occurrence: None)
  Receive Date: 20061030
  Receipt Date: 20061030
  Transmission Date: 20070319
  Serious: Yes (Life-Threatening, Hospitalization)
  Sender: FDA-Public Use
  Company Number: None

PATIENT
  Age: 63 Year
  Sex: Female

DRUGS (1)
  1. DEXFERRUM [Suspect]
     Indication: IRON DEFICIENCY ANAEMIA
     Dosage: 25 MG IN 25 ML OF NS IV  SINGLE DOSE
     Route: 042
     Dates: start: 20061025, end: 20061025

REACTIONS (4)
  - ANAPHYLACTIC REACTION [None]
  - ARTHRALGIA [None]
  - FEELING ABNORMAL [None]
  - INFUSION RELATED REACTION [None]
